FAERS Safety Report 4450589-1 (Version None)
Quarter: 2004Q3

REPORT INFORMATION
  Report Type: 
  Country: None (occurrence: None)
  Receive Date: 20040914
  Receipt Date: 20040901
  Transmission Date: 20050211
  Serious: Yes (Other)
  Sender: FDA-Public Use
  Company Number: TEST00204003034

PATIENT
  Sex: Female

DRUGS (2)
  1. ANDROGEL [Suspect]
     Indication: ILL-DEFINED DISORDER
     Dosage: DAILY; TD
     Route: 062
  2. LENECTAL (LENECTAL) [Suspect]
     Indication: ILL-DEFINED DISORDER
     Dosage: DAILY

REACTIONS (1)
  - BENIGN NEOPLASM OF THYROID GLAND [None]
